FAERS Safety Report 12356907 (Version 2)
Quarter: 2016Q2

REPORT INFORMATION
  Report Type: Spontaneous
  Country: US (occurrence: US)
  Receive Date: 20160511
  Receipt Date: 20160628
  Transmission Date: 20160815
  Serious: No
  Sender: FDA-Public Use
  Company Number: US-PFIZER INC-2016246062

PATIENT
  Age: 74 Year
  Sex: Male
  Weight: 73.94 kg

DRUGS (1)
  1. INLYTA [Suspect]
     Active Substance: AXITINIB
     Indication: RENAL CANCER
     Dosage: 10 MG, UNK
     Dates: start: 20160301, end: 20160428

REACTIONS (2)
  - Disease progression [Unknown]
  - Renal cancer [Unknown]
